FAERS Safety Report 4710027-8 (Version None)
Quarter: 2005Q3

REPORT INFORMATION
  Report Type: 
  Country: None (occurrence: None)
  Receive Date: 20050708
  Receipt Date: 20050606
  Transmission Date: 20060218
  Serious: Yes (Other)
  Sender: FDA-Public Use
  Company Number: PHEH2005US06345

PATIENT
  Age: 51 Year
  Sex: Female

DRUGS (7)
  1. ZOMETA [Suspect]
     Indication: METASTASES TO BONE
     Dosage: 4 MG MONTHLY
     Dates: start: 20020701, end: 20050525
  2. HERCEPTIN [Concomitant]
     Indication: METASTASIS
     Dosage: 120 MG WEEKLY
     Dates: start: 20020101, end: 20050101
  3. HERCEPTIN [Concomitant]
     Dosage: 360 MG EVERY 3 WEEKS
     Dates: start: 20050110
  4. NAVELBINE [Concomitant]
     Indication: METASTASIS
     Dosage: 20 MG/M2 WEEKLY
     Dates: start: 20020118, end: 20020829
  5. TAXOL [Concomitant]
     Indication: METASTASIS
     Dosage: 60 MG/M2 EVERY WEEK
     Dates: start: 20021001, end: 20041001
  6. TAXOTERE [Concomitant]
     Indication: METASTASIS
     Dosage: 40 MG M2 EVERY WEEK
     Dates: start: 20041001, end: 20050101
  7. DEXAMETHASONE [Concomitant]
     Dosage: 20 MG EVERY WEEK
     Dates: start: 20021001, end: 20050101

REACTIONS (2)
  - ASEPTIC NECROSIS BONE [None]
  - TOOTH EXTRACTION [None]
